FAERS Safety Report 24194414 (Version 1)
Quarter: 2024Q3

REPORT INFORMATION
  Report Type: Spontaneous
  Country: US (occurrence: None)
  Receive Date: 20240808
  Receipt Date: 20240808
  Transmission Date: 20241016
  Serious: Yes (Life-Threatening, Hospitalization)
  Sender: Public
  Company Number: None

PATIENT
  Age: 23 Year
  Sex: Female
  Weight: 54 kg

DRUGS (10)
  1. LAMOTRIGINE [Suspect]
     Active Substance: LAMOTRIGINE
     Indication: Affective disorder
     Dosage: OTHER QUANTITY : 30 TABLET(S);?FREQUENCY : DAILY;?
     Route: 048
     Dates: start: 20231201, end: 20240708
  2. TOPIRAMATE [Suspect]
     Active Substance: TOPIRAMATE
     Indication: Migraine
     Dosage: OTHER QUANTITY : 60 TABLET(S);?FREQUENCY : TWICE A DAY;?
     Route: 048
     Dates: start: 202404, end: 20240617
  3. EFFEXOR [Concomitant]
     Active Substance: VENLAFAXINE HYDROCHLORIDE
  4. PRAVASTATIN [Concomitant]
     Active Substance: PRAVASTATIN
  5. METOPROLOL [Concomitant]
     Active Substance: METOPROLOL
  6. SUMATRIPTAN [Concomitant]
     Active Substance: SUMATRIPTAN
  7. ROBAXIN [Concomitant]
     Active Substance: METHOCARBAMOL
  8. REXULTI [Concomitant]
     Active Substance: BREXPIPRAZOLE
  9. MIRALAX [Concomitant]
     Active Substance: POLYETHYLENE GLYCOL 3350
  10. Ibuprofen/Excedrin [Concomitant]

REACTIONS (7)
  - Hydrocephalus [None]
  - Suicidal ideation [None]
  - Confusional state [None]
  - Amnesia [None]
  - Tinnitus [None]
  - Paraesthesia oral [None]
  - Paraesthesia [None]

NARRATIVE: CASE EVENT DATE: 20240421
